FAERS Safety Report 10258105 (Version 1)
Quarter: 2014Q2

REPORT INFORMATION
  Report Type: Spontaneous
  Country: US (occurrence: None)
  Receive Date: 20140623
  Receipt Date: 20140623
  Transmission Date: 20141212
  Serious: Yes (Death)
  Sender: FDA-Public Use
  Company Number: UNT-2014-002391

PATIENT
  Sex: Female

DRUGS (12)
  1. TYVASO [Suspect]
     Indication: COR PULMONALE CHRONIC
     Route: 055
     Dates: start: 20130411
  2. NORETHINDRONE (NORETHISTERONE) [Concomitant]
  3. XIFAXAN (RIFAXIMIN) [Concomitant]
  4. ADVIL (MEFENAMIC ACID) [Concomitant]
  5. ALEVE (NAPROXEN SODIUM) [Concomitant]
  6. POTASSIUM CHLORIDE (POTASSIUM CHLORIDE) [Concomitant]
  7. SPIRONOLACTONE (SPIRONOLACTONE) [Concomitant]
  8. LEVOTHYROXINE (LEVOTHYROXINE) [Concomitant]
  9. FUROSEMIDE (FUROSEMIDE) [Concomitant]
  10. LACTOSE (LACTOSE) [Concomitant]
  11. PROPRANOLOL (PROPRANOLOL) [Concomitant]
  12. ADCIRCA (TADALAFIL) [Concomitant]

REACTIONS (1)
  - Haemorrhage [None]
